FAERS Safety Report 18475280 (Version 6)
Quarter: 2023Q4

REPORT INFORMATION
  Report Type: Spontaneous
  Country: US (occurrence: US)
  Receive Date: 20201106
  Receipt Date: 20231115
  Transmission Date: 20240110
  Serious: No
  Sender: FDA-Public Use
  Company Number: US-PFIZER INC-2020429820

PATIENT
  Age: 63 Year
  Sex: Female
  Weight: 64.15 kg

DRUGS (4)
  1. IBRANCE [Suspect]
     Active Substance: PALBOCICLIB
     Indication: Breast cancer female
     Dosage: 125 MG
     Dates: start: 20200628, end: 20200628
  2. IBRANCE [Suspect]
     Active Substance: PALBOCICLIB
     Dosage: 125 MG, ONCE DAILY 21 DAYS ON AND 7 DAYS OFF
     Dates: start: 20200630
  3. LETROZOLE [Concomitant]
     Active Substance: LETROZOLE
     Indication: Breast cancer
     Dosage: UNK
     Dates: start: 20200630
  4. XGEVA [Concomitant]
     Active Substance: DENOSUMAB
     Dosage: UNK (EVERY 16 WEEKS)
     Dates: start: 20200630

REACTIONS (6)
  - Abdominal discomfort [Recovering/Resolving]
  - Nausea [Not Recovered/Not Resolved]
  - Lacrimation increased [Unknown]
  - Emotional disorder [Unknown]
  - Neoplasm progression [Unknown]
  - Eye allergy [Unknown]

NARRATIVE: CASE EVENT DATE: 20200101
